FAERS Safety Report 6686031 (Version 9)
Quarter: 2013Q2

REPORT INFORMATION
  Report Type: Spontaneous
  Country: US (occurrence: US)
  Receive Date: 20080627
  Receipt Date: 20130607
  Transmission Date: 20140414
  Serious: Yes (Hospitalization, Congenital Anomaly, Other)
  Sender: FDA-Public Use
  Company Number: US-PFIZER INC-2008051539

PATIENT
  Sex: Female
  Weight: 3 kg

DRUGS (1)
  1. ZOLOFT [Suspect]
     Dosage: UNK
     Route: 064

REACTIONS (15)
  - Foetal exposure during pregnancy [Unknown]
  - Fallot^s tetralogy [Not Recovered/Not Resolved]
  - Congenital coronary artery malformation [Unknown]
  - Electrocardiogram QT prolonged [Recovered/Resolved]
  - Pulmonary hypertension [Unknown]
  - Right atrial dilatation [Unknown]
  - Pneumothorax [Unknown]
  - Pulmonary oedema [Unknown]
  - Aortic valve incompetence [Unknown]
  - Tricuspid valve incompetence [Unknown]
  - Cardiomegaly [Unknown]
  - Atrioventricular block first degree [Unknown]
  - Dilatation ventricular [Unknown]
  - Cardiac disorder [Unknown]
  - Congenital anomaly [Unknown]
